FAERS Safety Report 10119035 (Version 1)
Quarter: 2014Q2

REPORT INFORMATION
  Report Type: Spontaneous
  Country: IT (occurrence: IT)
  Receive Date: 20140425
  Receipt Date: 20140425
  Transmission Date: 20141212
  Serious: Yes (Hospitalization)
  Sender: FDA-Public Use
  Company Number: IT-SHIRE-IT201401405

PATIENT
  Age: 38 Year
  Sex: Male

DRUGS (3)
  1. XAGRID [Suspect]
     Indication: ESSENTIAL THROMBOCYTHAEMIA
     Dosage: 4 MG, UNK
     Route: 048
  2. XAGRID [Suspect]
     Dosage: 2 MG, UNKNOWN
     Route: 048
  3. XAGRID [Suspect]
     Dosage: 1 UNK, UNK
     Route: 048

REACTIONS (2)
  - Cardiac ventricular thrombosis [Unknown]
  - Cardiac failure [Unknown]
